FAERS Safety Report 5816102-9 (Version None)
Quarter: 2008Q3

REPORT INFORMATION
  Report Type: 
  Country: None (occurrence: None)
  Receive Date: 20080716
  Receipt Date: 20080716
  Transmission Date: 20090109
  Serious: No
  Sender: FDA-Public Use
  Company Number: None

PATIENT
  Age: 24 Year
  Sex: Male
  Weight: 88.4514 kg

DRUGS (2)
  1. SERTRALINE [Suspect]
     Indication: DYSTHYMIC DISORDER
     Dosage: 100MG DAILY PO
     Route: 048
     Dates: start: 20080314, end: 20080614
  2. ESCITALOPRAM 10MG FOREST PHARM. [Suspect]
     Indication: DYSTHYMIC DISORDER
     Dosage: 10 MG DAILY PO
     Route: 048
     Dates: start: 20080615, end: 20080715

REACTIONS (3)
  - ANORGASMIA [None]
  - ERECTILE DYSFUNCTION [None]
  - SEXUAL DYSFUNCTION [None]
